FAERS Safety Report 4681548-1 (Version None)
Quarter: 2005Q2

REPORT INFORMATION
  Report Type: 
  Country: None (occurrence: None)
  Receive Date: 20050603
  Receipt Date: 20050523
  Transmission Date: 20051028
  Serious: Yes (Other)
  Sender: FDA-Public Use
  Company Number: US-GLAXOSMITHKLINE-A0559714A

PATIENT
  Age: 40 Year
  Sex: Male

DRUGS (1)
  1. COMMIT [Suspect]
     Route: 002
     Dates: start: 20050401, end: 20050526

REACTIONS (3)
  - DIARRHOEA [None]
  - HEPATIC ENZYME INCREASED [None]
  - STRESS [None]
